FAERS Safety Report 23294492 (Version 5)
Quarter: 2023Q4

REPORT INFORMATION
  Report Type: Spontaneous
  Country: US (occurrence: US)
  Receive Date: 20231213
  Receipt Date: 20231229
  Transmission Date: 20240109
  Serious: No
  Sender: FDA-Public Use
  Company Number: US-PFIZER INC-2020222163

PATIENT
  Age: 84 Year
  Sex: Female
  Weight: 62.14 kg

DRUGS (12)
  1. RETACRIT [Suspect]
     Active Substance: EPOETIN ALFA-EPBX
     Indication: Chronic kidney disease
     Dosage: 20 IU, EVERY 4 WEEKS
  2. RETACRIT [Suspect]
     Active Substance: EPOETIN ALFA-EPBX
     Indication: Nephrogenic anaemia
     Dosage: 20000 IU, DAILY, EVERY DAY
  3. RETACRIT [Suspect]
     Active Substance: EPOETIN ALFA-EPBX
     Dosage: 20000 IU, MONTHLY
  4. RETACRIT [Suspect]
     Active Substance: EPOETIN ALFA-EPBX
     Dosage: 20000 IU, (10000 UNITS X2)
  5. RETACRIT [Suspect]
     Active Substance: EPOETIN ALFA-EPBX
     Dosage: 10000 IU (2 ML EVERY 4 WEEKS BY INJECTION ROUTE)
  6. RETACRIT [Suspect]
     Active Substance: EPOETIN ALFA-EPBX
     Dosage: 10000 IU, (TAKE 1 ML EVERY 4 WEEKS BY INJECTION ROUTE)
     Dates: start: 20210720
  7. RETACRIT [Suspect]
     Active Substance: EPOETIN ALFA-EPBX
     Dosage: 10000 IU, MONTHLY (10,000 U/ML MONTHLY)
  8. RETACRIT [Suspect]
     Active Substance: EPOETIN ALFA-EPBX
     Dosage: 2 ML, MONTHLY (EVERY 4 WEEKS BY INJECTION ROUTE)
     Route: 042
     Dates: start: 20221005
  9. RETACRIT [Suspect]
     Active Substance: EPOETIN ALFA-EPBX
     Dosage: 10000 IU (TAKE 1 UNIT(S) AS NEEDED BY INJECTION ROUTE)
     Route: 042
  10. RETACRIT [Suspect]
     Active Substance: EPOETIN ALFA-EPBX
     Dosage: 40000 IU, 2 ML EVERY 2 WEEKS
     Route: 042
  11. RETACRIT [Suspect]
     Active Substance: EPOETIN ALFA-EPBX
     Dosage: 2 ML (TAKE 2 ML EVERY 2 WEEKS BY INJECTION ROUTE)
  12. RETACRIT [Suspect]
     Active Substance: EPOETIN ALFA-EPBX
     Dosage: 40000 IU, EVERY 2 WEEKS (TAKE 1 ML EVERY 2 WEEKS BY INJECTION ROUTE)

REACTIONS (4)
  - Haemoglobin decreased [Unknown]
  - Off label use [Unknown]
  - Product use issue [Unknown]
  - Off label use [Unknown]
